FAERS Safety Report 9485278 (Version 3)
Quarter: 2013Q3

REPORT INFORMATION
  Report Type: Spontaneous
  Country: DE (occurrence: DE)
  Receive Date: 20130828
  Receipt Date: 20130911
  Transmission Date: 20140515
  Serious: Yes (Hospitalization)
  Sender: FDA-Public Use
  Company Number: DE-BAXTER-2013BAX033177

PATIENT
  Age: 7 Year
  Sex: Male

DRUGS (2)
  1. FEIBA NF 500 E [Suspect]
     Indication: FACTOR VIII INHIBITION
     Route: 042
     Dates: start: 20121018
  2. FEIBA NF 500 E [Suspect]
     Route: 042
     Dates: start: 20130813

REACTIONS (2)
  - Device related infection [Recovered/Resolved]
  - Pyrexia [Recovered/Resolved]
